FAERS Safety Report 10338309 (Version 1)
Quarter: 2014Q3

REPORT INFORMATION
  Report Type: Spontaneous
  Country: US (occurrence: None)
  Receive Date: 20140722
  Receipt Date: 20140722
  Transmission Date: 20150326
  Serious: Yes (Hospitalization)
  Sender: FDA-Public Use
  Company Number: 2014AP003618

PATIENT
  Age: 9 Month
  Sex: Female

DRUGS (1)
  1. FOSPHENYTOIN SODIUM. [Suspect]
     Active Substance: FOSPHENYTOIN SODIUM
     Indication: CONVULSION
     Dosage: LOADING DOSE.
     Route: 042

REACTIONS (3)
  - Acute respiratory failure [None]
  - Accidental overdose [None]
  - Cardiogenic shock [None]
